FAERS Safety Report 23076956 (Version 1)
Quarter: 2023Q4

REPORT INFORMATION
  Report Type: Spontaneous
  Country: FR (occurrence: FR)
  Receive Date: 20231018
  Receipt Date: 20231018
  Transmission Date: 20240110
  Serious: Yes (Hospitalization)
  Sender: FDA-Public Use
  Company Number: None

PATIENT
  Age: 34 Year
  Sex: Male

DRUGS (18)
  1. CLONAZEPAM [Interacting]
     Active Substance: CLONAZEPAM
     Indication: Neuralgia
     Dosage: 8 DROPS AT BEDTIME?DAILY DOSE: 8 DROP
     Route: 048
     Dates: end: 20230914
  2. CYAMEMAZINE [Interacting]
     Active Substance: CYAMEMAZINE
     Indication: Bipolar I disorder
     Dosage: 50 MG MORNING AND 75 MG EVENING?DAILY DOSE: 125 MILLIGRAM
     Route: 048
     Dates: end: 20230914
  3. BACLOFEN [Interacting]
     Active Substance: BACLOFEN
     Indication: Muscle spasticity
     Dosage: 20 MG X 4/DAY?DAILY DOSE: 80 MILLIGRAM
     Route: 048
     Dates: end: 20230914
  4. KETAMINE [Interacting]
     Active Substance: KETAMINE
     Indication: Multiple sclerosis relapse
     Route: 042
     Dates: start: 20230902, end: 20230905
  5. DEPAKOTE [Interacting]
     Active Substance: DIVALPROEX SODIUM
     Indication: Bipolar I disorder
     Dosage: 500 MG X 3 PER DAY?DAILY DOSE: 1500 MILLIGRAM
     Route: 048
     Dates: end: 20230914
  6. ACETAMINOPHEN\BELLADONNA LEAF\CAFFEINE\OPIUM [Interacting]
     Active Substance: ACETAMINOPHEN\BELLADONNA LEAF\CAFFEINE\OPIUM
     Indication: Neuralgia
     Dosage: IF NECESSARY
     Route: 048
     Dates: end: 20230914
  7. TRIMEPRAZINE [Interacting]
     Active Substance: TRIMEPRAZINE
     Indication: Insomnia
     Dosage: ORAL SOLUTION DROPS AT BEDTIME?DAILY DOSE: 4 MILLIGRAM
     Route: 048
     Dates: end: 20230914
  8. EFFEXOR [Interacting]
     Active Substance: VENLAFAXINE HYDROCHLORIDE
     Indication: Neuralgia
     Dosage: EXTENDED RELEASE CAPSULE, 150 MG X 2 PER DAY?DAILY DOSE: 300 MILLIGRAM
     Route: 048
     Dates: end: 20230914
  9. OXYCODONE HYDROCHLORIDE [Interacting]
     Active Substance: OXYCODONE HYDROCHLORIDE
     Indication: Neuralgia
     Dosage: IF NECESSARY?DAILY DOSE: 30 MILLIGRAM
     Route: 048
     Dates: end: 20230914
  10. VESICARE [Interacting]
     Active Substance: SOLIFENACIN SUCCINATE
     Indication: Pollakiuria
     Dosage: IN THE EVENING?DAILY DOSE: 5 MILLIGRAM
     Route: 048
     Dates: end: 20230914
  11. AMITRIPTYLINE HYDROCHLORIDE [Interacting]
     Active Substance: AMITRIPTYLINE HYDROCHLORIDE
     Indication: Bipolar I disorder
     Dosage: 50 MG X 3 PER DAY?DAILY DOSE: 150 MILLIGRAM
     Route: 048
     Dates: end: 20230914
  12. CIPROFLOXACIN [Interacting]
     Active Substance: CIPROFLOXACIN
     Indication: Prostatitis
     Dosage: DAILY DOSE: 1000 MILLIGRAM
     Route: 048
     Dates: start: 20230902, end: 20230914
  13. OXYCONTIN [Interacting]
     Active Substance: OXYCODONE HYDROCHLORIDE
     Indication: Neuralgia
     Dosage: SUSTAINED-RELEASE FILM-COATED TABLET, 40 MG X 2/DAY?DAILY DOSE: 80 MILLIGRAM
     Route: 048
     Dates: end: 20230914
  14. ESOMEPRAZOLE [Concomitant]
     Active Substance: ESOMEPRAZOLE
  15. LIDOCAINE [Concomitant]
     Active Substance: LIDOCAINE
  16. AUBAGIO [Concomitant]
     Active Substance: TERIFLUNOMIDE
  17. CHOLECALCIFEROL [Concomitant]
     Active Substance: CHOLECALCIFEROL
  18. Dexeryl [Concomitant]

REACTIONS (17)
  - Hypertonia [Recovered/Resolved]
  - Myoclonus [Recovered/Resolved]
  - Hypertension [Recovered/Resolved]
  - Sputum increased [Recovered/Resolved]
  - Vomiting [Recovered/Resolved]
  - Dyspnoea [Recovered/Resolved]
  - Psychomotor hyperactivity [Recovered/Resolved]
  - Somnolence [Recovered/Resolved]
  - Confusional state [Recovered/Resolved]
  - Hyperhidrosis [Recovered/Resolved]
  - Tachycardia [Recovered/Resolved]
  - Mydriasis [Unknown]
  - Relapsing-remitting multiple sclerosis [Unknown]
  - Prostatitis [Unknown]
  - Serotonin syndrome [Unknown]
  - Encephalopathy [Unknown]
  - Off label use [Recovered/Resolved]

NARRATIVE: CASE EVENT DATE: 20230902
